FAERS Safety Report 22206039 (Version 3)
Quarter: 2023Q2

REPORT INFORMATION
  Report Type: Spontaneous
  Country: US (occurrence: US)
  Receive Date: 20230413
  Receipt Date: 20230512
  Transmission Date: 20230721
  Serious: No
  Sender: FDA-Public Use
  Company Number: US-LEO Pharma-351137

PATIENT
  Age: 56 Year
  Sex: Male

DRUGS (4)
  1. ADBRY [Suspect]
     Active Substance: TRALOKINUMAB-LDRM
     Indication: Dermatitis allergic
     Dosage: DOSAGE : 600 MG FOR THE INITIAL DOSE SUBCUTANEOUSLY
     Route: 058
     Dates: start: 202303
  2. ADBRY [Suspect]
     Active Substance: TRALOKINUMAB-LDRM
     Indication: Dermatitis allergic
     Dosage: DOSAGE : 600 MG FOR THE INITIAL DOSE SUBCUTANEOUSLY
     Route: 058
     Dates: start: 202303
  3. ADBRY [Suspect]
     Active Substance: TRALOKINUMAB-LDRM
     Indication: Psoriasis
     Dosage: DOSAGE : 600 MG FOR THE INITIAL DOSE SUBCUTANEOUSLY
     Route: 058
     Dates: start: 202303
  4. ADBRY [Suspect]
     Active Substance: TRALOKINUMAB-LDRM
     Indication: Psoriasis
     Dosage: DOSAGE : 600 MG FOR THE INITIAL DOSE SUBCUTANEOUSLY
     Route: 058
     Dates: start: 202303

REACTIONS (5)
  - Somnolence [Not Recovered/Not Resolved]
  - Product use in unapproved indication [Not Recovered/Not Resolved]
  - Dizziness [Unknown]
  - Fatigue [Unknown]
  - Fatigue [Not Recovered/Not Resolved]

NARRATIVE: CASE EVENT DATE: 20230301
